FAERS Safety Report 8880775 (Version 1)
Quarter: 2012Q4

REPORT INFORMATION
  Report Type: Report from Study
  Country: JP (occurrence: JP)
  Receive Date: 20121101
  Receipt Date: 20121101
  Transmission Date: 20130627
  Serious: Yes (Death, Other)
  Sender: FDA-Public Use
  Company Number: JP-CELGENEUS-087-50794-12082485

PATIENT
  Age: 67 Year
  Sex: Male
  Weight: 76 kg

DRUGS (3)
  1. VIDAZA [Suspect]
     Indication: MDS
     Dosage: 135 milligram/sq. meter
     Route: 058
     Dates: start: 20120528, end: 20120601
  2. VIDAZA [Suspect]
     Dosage: 135 milligram/sq. meter
     Route: 058
     Dates: start: 20120625, end: 20120629
  3. VIDAZA [Suspect]
     Dosage: 135 milligram/sq. meter
     Route: 058
     Dates: start: 20120723, end: 20120727

REACTIONS (5)
  - Sepsis [Fatal]
  - Pneumonia [Fatal]
  - Platelet count decreased [Not Recovered/Not Resolved]
  - Febrile neutropenia [Recovered/Resolved]
  - White blood cell count decreased [Not Recovered/Not Resolved]
